FAERS Safety Report 24843076 (Version 1)
Quarter: 2025Q1

REPORT INFORMATION
  Report Type: Report from Study
  Country: US (occurrence: US)
  Receive Date: 20250115
  Receipt Date: 20250115
  Transmission Date: 20250409
  Serious: No
  Sender: HRA PHARMA
  Company Number: US-ORG100014127-2024000281

PATIENT
  Age: 64 Year
  Sex: Female

DRUGS (4)
  1. LYSODREN [Suspect]
     Active Substance: MITOTANE
     Indication: Adrenal gland cancer
     Dosage: 2 TABLETS EVERY MORNING, AFTERNOON AND EVENING
     Route: 048
     Dates: start: 20240722
  2. LYSODREN [Suspect]
     Active Substance: MITOTANE
     Indication: Adrenal gland cancer
     Dosage: 4 TABLETS BY MOUTH TWICE DAILY
     Route: 048
  3. DILTIAZEM CAP 360MG ER [Concomitant]
     Indication: Product used for unknown indication
  4. HYDROCORT OIN 0.5% [Concomitant]
     Indication: Product used for unknown indication

REACTIONS (1)
  - Sleep disorder [Not Recovered/Not Resolved]
